FAERS Safety Report 5853614-6 (Version None)
Quarter: 2008Q3

REPORT INFORMATION
  Report Type: 
  Country: None (occurrence: None)
  Receive Date: 20080822
  Receipt Date: 20080811
  Transmission Date: 20090109
  Serious: Yes (Hospitalization)
  Sender: FDA-Public Use
  Company Number: US-JNJFOC-20080803556

PATIENT
  Sex: Male
  Weight: 32.2 kg

DRUGS (7)
  1. INFLIXIMAB [Suspect]
     Route: 042
  2. INFLIXIMAB [Suspect]
     Indication: CROHN'S DISEASE
     Route: 042
  3. MULTIVITAMINS WITH IRON [Concomitant]
  4. FERROUS SULFATE TAB [Concomitant]
  5. RANITIDINE [Concomitant]
  6. PREDNISONE TAB [Concomitant]
  7. PENTASA [Concomitant]

REACTIONS (1)
  - ENTEROVESICAL FISTULA [None]
